FAERS Safety Report 4989370-3 (Version None)
Quarter: 2006Q2

REPORT INFORMATION
  Report Type: 
  Country: None (occurrence: None)
  Receive Date: 20060425
  Receipt Date: 20060413
  Transmission Date: 20061013
  Serious: Yes (Other)
  Sender: FDA-Public Use
  Company Number: 2006PV011263

PATIENT
  Age: 63 Year
  Sex: Female
  Weight: 103.8737 kg

DRUGS (5)
  1. BYETTA [Suspect]
     Dosage: 5 MCG BID
     Dates: start: 20060224, end: 20060320
  2. LANTUS [Concomitant]
  3. GLUCOPHAGE [Concomitant]
  4. AVANDIA [Concomitant]
  5. DYAZIDE [Concomitant]

REACTIONS (3)
  - INFLUENZA LIKE ILLNESS [None]
  - NAUSEA [None]
  - PANCREATITIS ACUTE [None]
